FAERS Safety Report 13983491 (Version 3)
Quarter: 2018Q3

REPORT INFORMATION
  Report Type: Spontaneous
  Country: US (occurrence: US)
  Receive Date: 20170918
  Receipt Date: 20180706
  Transmission Date: 20181010
  Serious: No
  Sender: FDA-Public Use
  Company Number: US-RECKITT BENCKISER HEALTHCARE INT LIMITED-RB-90490-2017

PATIENT
  Sex: Female

DRUGS (2)
  1. MUCINEX [Suspect]
     Active Substance: GUAIFENESIN
     Indication: NASOPHARYNGITIS
     Dosage: UNK
     Route: 065
  2. ZICAM                              /00070002/ [Concomitant]
     Indication: RESPIRATORY TRACT CONGESTION
     Dosage: UNK
     Route: 065

REACTIONS (2)
  - Hypogeusia [Unknown]
  - Anosmia [Unknown]
